FAERS Safety Report 18927739 (Version 1)
Quarter: 2021Q1

REPORT INFORMATION
  Report Type: Spontaneous
  Country: US (occurrence: US)
  Receive Date: 20210223
  Receipt Date: 20210223
  Transmission Date: 20210420
  Serious: Yes (Hospitalization)
  Sender: FDA-Public Use
  Company Number: US-MYLANLABS-2021M1011149

PATIENT
  Sex: Female

DRUGS (12)
  1. POSACONAZOLE [Suspect]
     Active Substance: POSACONAZOLE
     Indication: MENINGITIS COCCIDIOIDES
     Dosage: 300 MILLIGRAM, QD
     Route: 048
  2. AMPHOTERICIN B, LIPOSOME [Suspect]
     Active Substance: AMPHOTERICIN B
     Indication: MENINGITIS COCCIDIOIDES
     Dosage: 5 MILLIGRAM/KILOGRAM, QD...
     Route: 042
  3. AMPHOTERICIN B DEOXYCHOLATE [Concomitant]
     Active Substance: AMPHOTERICIN B
     Dosage: 0.05 MILLIGRAM, QW
     Route: 037
  4. AMPHOTERICIN B DEOXYCHOLATE [Concomitant]
     Active Substance: AMPHOTERICIN B
     Dosage: 0.3 MILLIGRAM, 3XW
     Route: 037
  5. FLUCONAZOLE. [Suspect]
     Active Substance: FLUCONAZOLE
     Indication: MENINGITIS COCCIDIOIDES
     Dosage: 200 MILLIGRAM
     Route: 048
  6. VORICONAZOLE. [Suspect]
     Active Substance: VORICONAZOLE
     Indication: MENINGITIS COCCIDIOIDES
     Dosage: 160 MILLIGRAM, BID
     Route: 048
  7. AMPHOTERICIN B, LIPOSOME [Suspect]
     Active Substance: AMPHOTERICIN B
     Dosage: THEN CONTINUED TWICE WEEKLY...
     Route: 042
  8. AMPHOTERICIN B DEOXYCHOLATE [Concomitant]
     Active Substance: AMPHOTERICIN B
     Indication: MENINGITIS COCCIDIOIDES
     Dosage: 0.05 MILLIGRAM
     Route: 037
  9. AMPHOTERICIN B DEOXYCHOLATE [Concomitant]
     Active Substance: AMPHOTERICIN B
     Dosage: OVER THE COURSE OF 6 MONTHS...
     Route: 037
  10. AMPHOTERICIN B DEOXYCHOLATE [Concomitant]
     Active Substance: AMPHOTERICIN B
     Dosage: TAPERED INITIALLY THREE TIMES...
     Route: 037
  11. AMPHOTERICIN B, LIPOSOME [Suspect]
     Active Substance: AMPHOTERICIN B
     Dosage: RE?STARTED THREE TIMES WEEKLY...
     Route: 042
  12. AMPHOTERICIN B DEOXYCHOLATE [Concomitant]
     Active Substance: AMPHOTERICIN B
     Dosage: OVER THE COURSE OF 6 MONTHS...
     Route: 037

REACTIONS (1)
  - Treatment failure [Unknown]
